FAERS Safety Report 8974676 (Version 1)
Quarter: 2012Q4

REPORT INFORMATION
  Report Type: 
  Country: EC (occurrence: EC)
  Receive Date: 20121219
  Receipt Date: 20121219
  Transmission Date: 20130627
  Serious: Yes (Hospitalization)
  Sender: FDA-Public Use
  Company Number: PHHY2012EC117033

PATIENT
  Sex: Male

DRUGS (2)
  1. EXFORGE [Suspect]
     Dosage: 1 DF(160 mg vals/ 5 mg amlo ), QD
     Route: 048
     Dates: start: 20110904
  2. EXFORGE [Suspect]
     Dosage: 1 DF(160 mg vals/ 5 mg amlo ), QD
     Route: 048

REACTIONS (2)
  - Cataract [Unknown]
  - Vision blurred [Unknown]
